FAERS Safety Report 18705863 (Version 1)
Quarter: 2021Q1

REPORT INFORMATION
  Report Type: Spontaneous
  Country: CN (occurrence: CN)
  Receive Date: 20210106
  Receipt Date: 20210106
  Transmission Date: 20210419
  Serious: Yes (Hospitalization, Other)
  Sender: FDA-Public Use
  Company Number: CN-009507513-2101CHN000159

PATIENT
  Age: 76 Year
  Sex: Male

DRUGS (2)
  1. KEYTRUDA [Suspect]
     Active Substance: PEMBROLIZUMAB
     Indication: GASTRIC CANCER STAGE IV
     Dosage: 100 MG; QD
     Route: 041
     Dates: start: 20190801, end: 20191231
  2. AI TAN [Concomitant]
     Indication: GASTRIC CANCER STAGE IV
     Dosage: 0.25 G; QD
     Route: 048
     Dates: start: 20191231, end: 20200119

REACTIONS (4)
  - Drug-induced liver injury [Recovering/Resolving]
  - Leukopenia [Unknown]
  - Inappropriate schedule of product administration [Unknown]
  - Thrombocytopenia [Unknown]

NARRATIVE: CASE EVENT DATE: 20190801
